FAERS Safety Report 25065651 (Version 2)
Quarter: 2025Q1

REPORT INFORMATION
  Report Type: Spontaneous
  Country: US (occurrence: US)
  Receive Date: 20250311
  Receipt Date: 20250311
  Transmission Date: 20250408
  Serious: No
  Sender: SANDOZ
  Company Number: US-SANDOZ-SDZ2025US013695

PATIENT
  Age: 60 Year
  Sex: Female

DRUGS (1)
  1. ESTRADIOL [Suspect]
     Active Substance: ESTRADIOL
     Indication: Product used for unknown indication
     Route: 062

REACTIONS (4)
  - Application site rash [Unknown]
  - Application site discolouration [Unknown]
  - Application site haemorrhage [Unknown]
  - Product adhesion issue [Unknown]
